FAERS Safety Report 10161155 (Version 1)
Quarter: 2014Q2

REPORT INFORMATION
  Report Type: Spontaneous
  Country: US (occurrence: US)
  Receive Date: 20140508
  Receipt Date: 20140508
  Transmission Date: 20141212
  Serious: No
  Sender: FDA-Public Use
  Company Number: US-PFIZER INC-2014124923

PATIENT
  Age: 69 Year
  Sex: Female
  Weight: 93.42 kg

DRUGS (3)
  1. AROMASIN [Suspect]
     Indication: NEOPLASM MALIGNANT
     Dosage: 25 MG, 1X/DAY
     Dates: start: 201404, end: 20140502
  2. AFINITOR [Suspect]
     Indication: NEOPLASM MALIGNANT
     Dosage: UNK
     Dates: start: 201404, end: 20140502
  3. ATENOLOL [Concomitant]
     Indication: HYPERTENSION
     Dosage: 50 MG, 2X/DAY

REACTIONS (4)
  - Drug intolerance [Unknown]
  - Fatigue [Unknown]
  - Oral pain [Unknown]
  - Activities of daily living impaired [Unknown]
